FAERS Safety Report 18509669 (Version 3)
Quarter: 2020Q4

REPORT INFORMATION
  Report Type: Spontaneous
  Country: US (occurrence: US)
  Receive Date: 20201117
  Receipt Date: 20201228
  Transmission Date: 20210114
  Serious: No
  Sender: FDA-Public Use
  Company Number: US-GRANULES-US-2020GRASPO00039

PATIENT
  Age: 61 Year
  Sex: Female

DRUGS (2)
  1. IBUPROFEN. [Suspect]
     Active Substance: IBUPROFEN
     Indication: PAIN
     Route: 048
     Dates: start: 20200808
  2. IBUPROFEN. [Suspect]
     Active Substance: IBUPROFEN
     Indication: PAIN IN EXTREMITY

REACTIONS (15)
  - Tongue pruritus [Unknown]
  - Throat irritation [Unknown]
  - Hypoaesthesia oral [Unknown]
  - Product substitution issue [Unknown]
  - Burning sensation [Unknown]
  - Dry mouth [Unknown]
  - Product taste abnormal [Unknown]
  - Oral pruritus [Unknown]
  - Product physical consistency issue [Unknown]
  - Oesophageal pain [Unknown]
  - Laryngeal pain [Unknown]
  - Lip pruritus [Unknown]
  - Oral discomfort [Unknown]
  - Retching [Unknown]
  - Pruritus [Unknown]

NARRATIVE: CASE EVENT DATE: 2020
